FAERS Safety Report 20918465 (Version 1)
Quarter: 2022Q2

REPORT INFORMATION
  Report Type: Spontaneous
  Country: US (occurrence: None)
  Receive Date: 20220603
  Receipt Date: 20220603
  Transmission Date: 20220721
  Serious: Yes (Other)
  Sender: FDA-Public Use
  Company Number: None

PATIENT
  Sex: Female

DRUGS (2)
  1. NIRMATRELVIR [Suspect]
     Active Substance: NIRMATRELVIR
     Indication: COVID-19
     Dosage: FREQUENCY : TWICE A DAY;?
     Route: 048
     Dates: start: 20220516, end: 20220521
  2. RITONAVIR [Suspect]
     Active Substance: RITONAVIR
     Indication: COVID-19
     Dosage: FREQUENCY : TWICE A DAY;?
     Route: 048
     Dates: start: 20220516, end: 20220521

REACTIONS (3)
  - Dyspnoea [None]
  - Lip swelling [None]
  - Paraesthesia oral [None]

NARRATIVE: CASE EVENT DATE: 20220517
